FAERS Safety Report 5380025-2 (Version None)
Quarter: 2007Q3

REPORT INFORMATION
  Report Type: 
  Country: None (occurrence: None)
  Receive Date: 20070703
  Receipt Date: 20070621
  Transmission Date: 20080115
  Serious: Yes (Disabling)
  Sender: FDA-Public Use
  Company Number: 230022M07DEU

PATIENT
  Age: 39 Year
  Sex: Female
  Weight: 90 kg

DRUGS (2)
  1. REBIF [Suspect]
     Indication: MULTIPLE SCLEROSIS
     Dosage: 44 MCG, 3 IN 1 WEEKS, SUBCUTANEOUS
     Route: 058
     Dates: start: 20050307
  2. MITOXANTRONE HYDROCHLORIDE (MITOXANTRONE HYDROCHLORIDE) [Suspect]
     Indication: MULTIPLE SCLEROSIS
     Dosage: 22 MG, 1 IN 1 3 MONTHS, INTRAVENOUS (NOT OTHERWISE SPECIFIED)
     Route: 042
     Dates: start: 19981106, end: 19990924

REACTIONS (8)
  - BRAIN STEM INFARCTION [None]
  - CEREBRAL DISORDER [None]
  - HAEMOLYTIC URAEMIC SYNDROME [None]
  - LEUKOCYTOSIS [None]
  - NEPHROTIC SYNDROME [None]
  - PSYCHOTIC DISORDER DUE TO A GENERAL MEDICAL CONDITION [None]
  - SCOTOMA [None]
  - THROMBOCYTHAEMIA [None]
